FAERS Safety Report 13586924 (Version 1)
Quarter: 2017Q2

REPORT INFORMATION
  Report Type: Spontaneous
  Country: US (occurrence: US)
  Receive Date: 20170526
  Receipt Date: 20170526
  Transmission Date: 20170830
  Serious: Yes (Other)
  Sender: FDA-Public Use
  Company Number: US-ROCHE-660157

PATIENT
  Age: 43 Year
  Sex: Female

DRUGS (2)
  1. TURMERIC [Suspect]
     Active Substance: HERBALS\TURMERIC
     Indication: ANTIINFLAMMATORY THERAPY
     Route: 065
  2. NAPROXEN. [Suspect]
     Active Substance: NAPROXEN
     Indication: OSTEOARTHRITIS
     Route: 065

REACTIONS (1)
  - Duodenal ulcer [Unknown]
